FAERS Safety Report 7548622-3 (Version None)
Quarter: 2011Q2

REPORT INFORMATION
  Report Type: 
  Country: None (occurrence: None)
  Receive Date: 20110524
  Receipt Date: 20110125
  Transmission Date: 20111010
  Serious: No
  Sender: FDA-Public Use
  Company Number: 026134

PATIENT
  Sex: Male
  Weight: 81.6 kg

DRUGS (4)
  1. OMEPRAZOLE [Concomitant]
  2. ENTOCORT EC [Concomitant]
  3. CIMZIA [Suspect]
     Indication: CROHN'S DISEASE
     Dosage: (2 SHOTS ONE IN EACH LEG SUBCUTANEOUS)
     Route: 058
     Dates: start: 20110108
  4. MESALAMINE [Concomitant]

REACTIONS (1)
  - INJECTION SITE PAIN [None]
